FAERS Safety Report 24956537 (Version 1)
Quarter: 2025Q1

REPORT INFORMATION
  Report Type: Spontaneous
  Country: US (occurrence: US)
  Receive Date: 20250211
  Receipt Date: 20250211
  Transmission Date: 20250409
  Serious: Yes (Hospitalization)
  Sender: FARMAKEIO OUTSOURCING LLC
  Company Number: US-FarmaKeio Outsourcing, LLC-2170899

PATIENT
  Sex: Female
  Weight: 82.727 kg

DRUGS (4)
  1. TESTOSTERONE\TRIAMCINOLONE ACETONIDE [Suspect]
     Active Substance: TESTOSTERONE\TRIAMCINOLONE ACETONIDE
     Indication: Menopausal symptoms
     Dates: start: 20250120, end: 20250130
  2. PROGESTERONE [Concomitant]
     Active Substance: PROGESTERONE
  3. TRAZODONE [Concomitant]
     Active Substance: TRAZODONE HYDROCHLORIDE
  4. SUMATRIPTAN [Concomitant]
     Active Substance: SUMATRIPTAN

REACTIONS (1)
  - Cellulitis [Recovering/Resolving]
